FAERS Safety Report 6430680-0 (Version None)
Quarter: 2009Q4

REPORT INFORMATION
  Report Type: 
  Country: None (occurrence: None)
  Receive Date: 20091106
  Receipt Date: 20091027
  Transmission Date: 20100525
  Serious: Yes (Other)
  Sender: FDA-Public Use
  Company Number: B0602266A

PATIENT
  Age: 67 Year
  Sex: Male

DRUGS (5)
  1. MELPHALAN [Suspect]
     Dates: start: 20031001
  2. LAMIVUDINE [Suspect]
     Dosage: 100MG PER DAY
  3. CARMUSTINE [Concomitant]
  4. ETOPOSIDE [Concomitant]
  5. CYTARABINE [Concomitant]

REACTIONS (7)
  - ALANINE AMINOTRANSFERASE INCREASED [None]
  - BLOOD BILIRUBIN INCREASED [None]
  - DRUG RESISTANCE [None]
  - FIBROSIS [None]
  - HEPATITIS B [None]
  - HEPATITIS B DNA INCREASED [None]
  - INFLAMMATION [None]
